FAERS Safety Report 12660725 (Version 2)
Quarter: 2016Q3

REPORT INFORMATION
  Report Type: Spontaneous
  Country: US (occurrence: US)
  Receive Date: 20160817
  Receipt Date: 20160901
  Transmission Date: 20161109
  Serious: No
  Sender: FDA-Public Use
  Company Number: US-RELYPSA-RLY2016001146

PATIENT
  Age: 78 Year
  Sex: Male

DRUGS (21)
  1. ALLOPURINOL. [Concomitant]
     Active Substance: ALLOPURINOL
  2. ATIVAN [Concomitant]
     Active Substance: LORAZEPAM
  3. IRON [Concomitant]
     Active Substance: IRON
  4. LIPITOR [Concomitant]
     Active Substance: ATORVASTATIN CALCIUM
  5. BUMEX [Concomitant]
     Active Substance: BUMETANIDE
  6. MICARDIS [Concomitant]
     Active Substance: TELMISARTAN
  7. AMLODIPINE BESYLATE. [Concomitant]
     Active Substance: AMLODIPINE BESYLATE
  8. FINASTERIDE. [Concomitant]
     Active Substance: FINASTERIDE
  9. FISH OIL [Concomitant]
     Active Substance: FISH OIL
  10. ZOLOFT [Concomitant]
     Active Substance: SERTRALINE HYDROCHLORIDE
  11. VELTASSA [Suspect]
     Active Substance: PATIROMER
     Indication: HYPERKALAEMIA
     Dosage: 25.2 G, QD
     Route: 048
     Dates: start: 20160422
  12. AMARYL [Concomitant]
     Active Substance: GLIMEPIRIDE
  13. DOXAZOSIN MESYLATE. [Concomitant]
     Active Substance: DOXAZOSIN MESYLATE
  14. LEVOTHYROXINE SODIUM. [Concomitant]
     Active Substance: LEVOTHYROXINE SODIUM
  15. PRILOSEC [Concomitant]
     Active Substance: OMEPRAZOLE MAGNESIUM
  16. MAGNESIUM [Concomitant]
     Active Substance: MAGNESIUM
  17. MULTIVITAMIN                       /00097801/ [Concomitant]
     Active Substance: VITAMINS
  18. ACTOS [Concomitant]
     Active Substance: PIOGLITAZONE HYDROCHLORIDE
  19. ASPIRIN                            /00002701/ [Concomitant]
     Active Substance: ASPIRIN
  20. GLUCOSAMINE + CHONDROITIN          /01430901/ [Concomitant]
  21. HYDRALAZINE HCL [Concomitant]
     Active Substance: HYDRALAZINE HYDROCHLORIDE

REACTIONS (2)
  - Dose calculation error [Unknown]
  - No adverse event [Unknown]

NARRATIVE: CASE EVENT DATE: 20160422
